FAERS Safety Report 15273997 (Version 2)
Quarter: 2018Q3

REPORT INFORMATION
  Report Type: Report from Study
  Country: None (occurrence: US)
  Receive Date: 20180814
  Receipt Date: 20180917
  Transmission Date: 20181010
  Serious: Yes (Other)
  Sender: FDA-Public Use
  Company Number: US-ABBVIE-18K-163-2448337-00

PATIENT
  Age: 53 Year
  Sex: Female
  Weight: 56.75 kg

DRUGS (1)
  1. HUMIRA [Suspect]
     Active Substance: ADALIMUMAB
     Indication: RHEUMATOID ARTHRITIS
     Route: 058
     Dates: start: 2017, end: 201806

REACTIONS (1)
  - Foot deformity [Recovering/Resolving]

NARRATIVE: CASE EVENT DATE: 2018
